FAERS Safety Report 18114982 (Version 2)
Quarter: 2020Q4

REPORT INFORMATION
  Report Type: Report from Study
  Country: US (occurrence: US)
  Receive Date: 20200805
  Receipt Date: 20201001
  Transmission Date: 20210113
  Serious: No
  Sender: FDA-Public Use
  Company Number: US-IPSEN BIOPHARMACEUTICALS, INC.-2020-13666

PATIENT
  Age: 4 Year
  Sex: Male
  Weight: 12.25 kg

DRUGS (7)
  1. DUOCAL [Concomitant]
     Dosage: POWDER, AS DIRECTED
     Route: 048
  2. GLUCAGON. [Concomitant]
     Active Substance: GLUCAGON
     Dosage: 1 MG KIT, AS DIRECTED
  3. PEDIASURE [Concomitant]
     Active Substance: VITAMINS
     Dosage: 1.5 CAL, LIQUID, AS DIRECTED
     Route: 048
  4. MULTIVITAMINS GUMMIES [Concomitant]
     Dosage: AS DIRECTED
     Route: 048
  5. INCRELEX [Suspect]
     Active Substance: MECASERMIN
     Dosage: DOSE WAS 39.18 UG/KG (4.8 UNITS) FOR 2WEEKS, 76.73 UG/KG (9.4 UNITS) FOR 2 WEEKS (BID)
     Route: 058
     Dates: start: 202002, end: 2020
  6. INSULIN SYRINGE [Concomitant]
     Active Substance: DEVICE
     Dosage: 30 G ? 1/2, 0.5ML, AS DIRECTED
     Route: 058
  7. INCRELEX [Suspect]
     Active Substance: MECASERMIN
     Indication: SHORT STATURE
     Dosage: 40 MG/ 4 ML:
     Route: 058
     Dates: start: 2020

REACTIONS (2)
  - Injection site swelling [Unknown]
  - Injection site hypertrophy [Recovered/Resolved]

NARRATIVE: CASE EVENT DATE: 2020
